FAERS Safety Report 5562964-2 (Version None)
Quarter: 2007Q4

REPORT INFORMATION
  Report Type: 
  Country: None (occurrence: None)
  Receive Date: 20071217
  Receipt Date: 20071210
  Transmission Date: 20080405
  Serious: Yes (Disabling, Other)
  Sender: FDA-Public Use
  Company Number: US-ROCHE-434151

PATIENT
  Age: 19 Year
  Sex: Male
  Weight: 140 kg

DRUGS (6)
  1. ACCUTANE [Suspect]
     Indication: ACNE
     Route: 048
     Dates: start: 20030228, end: 20030601
  2. ACCUTANE [Suspect]
     Route: 048
     Dates: start: 20030116, end: 20030228
  3. ACCUTANE [Suspect]
     Route: 048
     Dates: start: 20021114, end: 20030116
  4. PREVACID [Concomitant]
     Dates: start: 20030228, end: 20030301
  5. ACLOVATE OINTMENT [Concomitant]
     Dates: start: 20030301
  6. AMNESTEEM [Suspect]
     Indication: DRUG USE FOR UNKNOWN INDICATION
     Route: 048
     Dates: start: 20030408, end: 20030521

REACTIONS (15)
  - ANXIETY [None]
  - COELIAC DISEASE [None]
  - COLITIS [None]
  - CROHN'S DISEASE [None]
  - DEPRESSION [None]
  - DRY SKIN [None]
  - GASTROINTESTINAL INJURY [None]
  - HAEMATOCHEZIA [None]
  - INFLAMMATORY BOWEL DISEASE [None]
  - INTESTINAL HAEMORRHAGE [None]
  - LIP DRY [None]
  - OESOPHAGITIS [None]
  - PILONIDAL CYST [None]
  - RASH [None]
  - VERTIGO [None]
